FAERS Safety Report 4466912-8 (Version None)
Quarter: 2004Q3

REPORT INFORMATION
  Report Type: 
  Country: None (occurrence: None)
  Receive Date: 20040929
  Receipt Date: 20040929
  Transmission Date: 20050211
  Serious: No
  Sender: FDA-Public Use
  Company Number: None

PATIENT
  Age: 43 Year
  Sex: Male
  Weight: 178.7172 kg

DRUGS (1)
  1. METFORMIN HCL [Suspect]
     Dosage: 500 MG 2 TAB TWICE DAILY
     Dates: start: 20040729

REACTIONS (3)
  - ABDOMINAL DISCOMFORT [None]
  - APPETITE DISORDER [None]
  - DIABETES MELLITUS INADEQUATE CONTROL [None]
